FAERS Safety Report 20603202 (Version 1)
Quarter: 2022Q1

REPORT INFORMATION
  Report Type: Spontaneous
  Country: JP (occurrence: JP)
  Receive Date: 20220316
  Receipt Date: 20220316
  Transmission Date: 20220423
  Serious: Yes (Death, Other)
  Sender: FDA-Public Use
  Company Number: JP-JAZZ-2022-JP-005563

PATIENT
  Age: 65 Year
  Sex: Male
  Weight: 76.7 kg

DRUGS (3)
  1. DEFITELIO [Suspect]
     Active Substance: DEFIBROTIDE SODIUM
     Indication: Venoocclusive liver disease
     Dosage: 25 MILLIGRAM/KILOGRAM/24HOURS
     Route: 042
     Dates: start: 20210728, end: 20210730
  2. INOVAN [DOPAMINE HYDROCHLORIDE] [Concomitant]
     Indication: Product used for unknown indication
  3. THROMBOMODULIN ALFA [Concomitant]
     Active Substance: THROMBOMODULIN ALFA
     Indication: Product used for unknown indication
     Dosage: UNK
     Dates: start: 20210725, end: 20210730

REACTIONS (4)
  - Fusarium infection [Fatal]
  - Hypotension [Fatal]
  - Fungaemia [Fatal]
  - Haematoma muscle [Unknown]

NARRATIVE: CASE EVENT DATE: 20210812
